FAERS Safety Report 15278476 (Version 1)
Quarter: 2018Q3

REPORT INFORMATION
  Report Type: Spontaneous
  Country: US (occurrence: US)
  Receive Date: 20180814
  Receipt Date: 20180814
  Transmission Date: 20181010
  Serious: No
  Sender: FDA-Public Use
  Company Number: US-AMGEN-USASP2018110638

PATIENT
  Age: 49 Year
  Sex: Male

DRUGS (1)
  1. ENBREL [Suspect]
     Active Substance: ETANERCEPT
     Indication: STILL^S DISEASE
     Dosage: 50 MG, QWK
     Route: 065

REACTIONS (4)
  - Arthritis [Not Recovered/Not Resolved]
  - Off label use [Unknown]
  - Ligament sprain [Not Recovered/Not Resolved]
  - Accident [Unknown]
